FAERS Safety Report 8297812-3 (Version None)
Quarter: 2012Q2

REPORT INFORMATION
  Report Type: 
  Country: None (occurrence: None)
  Receive Date: 20120419
  Receipt Date: 20120417
  Transmission Date: 20120825
  Serious: No
  Sender: FDA-Public Use
  Company Number: US-BAYER-2012-037686

PATIENT
  Sex: Female
  Weight: 73 kg

DRUGS (1)
  1. BETASERON [Suspect]
     Indication: MULTIPLE SCLEROSIS
     Dosage: .3 MG, EVERY OTHER DAY
     Route: 058

REACTIONS (2)
  - HEADACHE [None]
  - PYREXIA [None]
